FAERS Safety Report 9249212 (Version 4)
Quarter: 2013Q3

REPORT INFORMATION
  Report Type: Spontaneous
  Country: US (occurrence: US)
  Receive Date: 20130423
  Receipt Date: 20130705
  Transmission Date: 20140515
  Serious: Yes (Death, Hospitalization, Other)
  Sender: FDA-Public Use
  Company Number: US-009507513-1203USA00782

PATIENT
  Sex: Female

DRUGS (3)
  1. FOSAMAX [Suspect]
     Indication: OSTEOPOROSIS
     Dosage: 5 MG, UNK
     Route: 048
     Dates: start: 20000705
  2. FOSAMAX [Suspect]
     Dosage: 70 MG, QW
     Route: 048
  3. EVISTA [Concomitant]
     Indication: OSTEOPOROSIS

REACTIONS (18)
  - Femur fracture [Unknown]
  - Open reduction of fracture [Unknown]
  - Dementia Alzheimer^s type [Fatal]
  - Mastectomy [Unknown]
  - Wrist fracture [Unknown]
  - Tooth extraction [Unknown]
  - Appendicectomy [Unknown]
  - Wrist surgery [Unknown]
  - Haemorrhagic anaemia [Unknown]
  - Rosacea [Unknown]
  - Pollakiuria [Unknown]
  - Goitre [Unknown]
  - Tachycardia [Unknown]
  - Hyperglycaemia [Unknown]
  - Pneumonia [Unknown]
  - Oedema [Unknown]
  - Transfusion [Unknown]
  - Fall [Unknown]
